FAERS Safety Report 6695925-0 (Version None)
Quarter: 2010Q2

REPORT INFORMATION
  Report Type: 
  Country: None (occurrence: None)
  Receive Date: 20100426
  Receipt Date: 20100412
  Transmission Date: 20101027
  Serious: Yes (Hospitalization)
  Sender: FDA-Public Use
  Company Number: US-ASTRAZENECA-2009SE18378

PATIENT
  Sex: Female

DRUGS (5)
  1. SEROQUEL [Suspect]
     Route: 048
     Dates: start: 20021231
  2. DIPRIVAN [Concomitant]
     Dates: end: 20030101
  3. PEPCID [Concomitant]
     Dosage: 20 MG IV Q.12H
     Dates: start: 20030101
  4. KLONOPIN [Concomitant]
     Dates: start: 20021231
  5. TOPAMAX [Concomitant]
     Dates: start: 20021231

REACTIONS (3)
  - DIABETES MELLITUS [None]
  - MULTIPLE DRUG OVERDOSE [None]
  - OVERDOSE [None]
